FAERS Safety Report 4367724-6 (Version None)
Quarter: 2004Q2

REPORT INFORMATION
  Report Type: 
  Country: None (occurrence: None)
  Receive Date: 20040527
  Receipt Date: 20030512
  Transmission Date: 20050107
  Serious: Yes (Disabling)
  Sender: FDA-Public Use
  Company Number: 262840

PATIENT
  Age: 34 Year
  Sex: Male

DRUGS (2)
  1. LARIAM [Suspect]
     Indication: PROPHYLAXIS
     Dosage: 1 DOSE FROM 1 PER WEEK ORAL
     Route: 048
     Dates: start: 20000315, end: 20000415
  2. LARIAM [Suspect]
     Indication: YELLOW FEVER
     Dosage: 1 DOSE FROM 1 PER WEEK ORAL
     Route: 048
     Dates: start: 20000315, end: 20000415

REACTIONS (38)
  - ABDOMINAL DISTENSION [None]
  - ABDOMINAL PAIN [None]
  - ACROPHOBIA [None]
  - ANXIETY [None]
  - BALANCE DISORDER [None]
  - BURNING SENSATION [None]
  - CLAUSTROPHOBIA [None]
  - COLD SWEAT [None]
  - CONSTIPATION [None]
  - DEPRESSION [None]
  - DIARRHOEA [None]
  - DISORIENTATION [None]
  - DISTURBANCE IN ATTENTION [None]
  - DIZZINESS [None]
  - DYSPNOEA [None]
  - EMOTIONAL DISTRESS [None]
  - FAECES DISCOLOURED [None]
  - FLATULENCE [None]
  - HEADACHE [None]
  - HEART RATE INCREASED [None]
  - HEART RATE IRREGULAR [None]
  - HYPERSENSITIVITY [None]
  - INSOMNIA [None]
  - IRRITABLE BOWEL SYNDROME [None]
  - LOOSE STOOLS [None]
  - MOTION SICKNESS [None]
  - NAUSEA [None]
  - PANIC ATTACK [None]
  - PARAESTHESIA [None]
  - PHOBIA [None]
  - PHOBIA OF FLYING [None]
  - PHOTOPHOBIA [None]
  - RASH [None]
  - SELF ESTEEM DECREASED [None]
  - SUICIDAL IDEATION [None]
  - TINNITUS [None]
  - VESTIBULAR DISORDER [None]
  - WEIGHT DECREASED [None]
